FAERS Safety Report 16601665 (Version 4)
Quarter: 2020Q1

REPORT INFORMATION
  Report Type: Report from Study
  Country: JP (occurrence: JP)
  Receive Date: 20190719
  Receipt Date: 20200330
  Transmission Date: 20200409
  Serious: Yes (Other)
  Sender: FDA-Public Use
  Company Number: JP-SHIRE-JP201919729AA

PATIENT
  Age: 3 Year
  Sex: Male
  Weight: 12.4 kg

DRUGS (4)
  1. PEGYLATED COAGULATION FACTOR VIII [Suspect]
     Active Substance: ANTIHEMOPHILIC FACTOR, PEGYLATED (MW 20000) HUMAN SEQUENCE RECOMBINANT
     Indication: FACTOR VIII DEFICIENCY
     Dosage: 500 INTERNATIONAL UNIT, ONE DOSE
     Route: 042
     Dates: start: 20190424, end: 20190424
  2. PEGYLATED COAGULATION FACTOR VIII [Suspect]
     Active Substance: ANTIHEMOPHILIC FACTOR, PEGYLATED (MW 20000) HUMAN SEQUENCE RECOMBINANT
     Dosage: 500 INTERNATIONAL UNIT, 2X A WEEK, TBNT005HA, TBNT012BA
     Route: 042
     Dates: start: 20190606, end: 20190624
  3. PEGYLATED COAGULATION FACTOR VIII [Suspect]
     Active Substance: ANTIHEMOPHILIC FACTOR, PEGYLATED (MW 20000) HUMAN SEQUENCE RECOMBINANT
     Indication: PROPHYLAXIS
     Dosage: 500 INTERNATIONAL UNIT, 1X/WEEK
     Route: 042
     Dates: start: 20190501, end: 20190514
  4. PEGYLATED COAGULATION FACTOR VIII [Suspect]
     Active Substance: ANTIHEMOPHILIC FACTOR, PEGYLATED (MW 20000) HUMAN SEQUENCE RECOMBINANT
     Dosage: 500 INTERNATIONAL UNIT, 2X A WEEK
     Route: 042
     Dates: start: 20190521, end: 20190603

REACTIONS (4)
  - Rhinitis allergic [Recovered/Resolved]
  - Upper respiratory tract inflammation [Recovered/Resolved]
  - Haemorrhage subcutaneous [Recovering/Resolving]
  - Factor VIII inhibition [Recovering/Resolving]

NARRATIVE: CASE EVENT DATE: 20190527
